FAERS Safety Report 5042612-0 (Version None)
Quarter: 2006Q3

REPORT INFORMATION
  Report Type: 
  Country: None (occurrence: None)
  Receive Date: 20060705
  Receipt Date: 20060622
  Transmission Date: 20061208
  Serious: Yes (Other)
  Sender: FDA-Public Use
  Company Number: PHEH2006US08242

PATIENT
  Age: 63 Year
  Sex: Female

DRUGS (7)
  1. ZOMETA [Suspect]
     Indication: METASTASES TO BONE
     Dosage: 4 MG EVERY MONTH
     Dates: start: 20020531, end: 20060331
  2. XELODA [Concomitant]
     Indication: BREAST CANCER
     Dosage: 100 MG BID FOR 14 DAYS
     Dates: start: 20030301, end: 20060331
  3. FEMARA [Concomitant]
     Indication: BREAST CANCER
     Dosage: 2.5 MG, QD
     Dates: start: 20060331
  4. LORTAB [Concomitant]
     Indication: BACK PAIN
     Dosage: UNK, PRN
     Dates: start: 20011001
  5. ALDACTONE [Concomitant]
     Indication: CARDIAC FAILURE CONGESTIVE
     Dosage: UNK, QD
     Dates: start: 20011001
  6. ASPIRIN [Concomitant]
     Indication: CORONARY ARTERY DISEASE
     Dosage: UNK, QD
  7. EFFEXOR [Concomitant]
     Indication: DEPRESSION
     Dosage: 75 MG, QD
     Dates: start: 20050701

REACTIONS (3)
  - OSTEONECROSIS [None]
  - PAIN [None]
  - SWELLING [None]
